FAERS Safety Report 15245475 (Version 1)
Quarter: 2018Q3

REPORT INFORMATION
  Report Type: Spontaneous
  Country: DE (occurrence: DE)
  Receive Date: 20180806
  Receipt Date: 20180806
  Transmission Date: 20181010
  Serious: Yes (Hospitalization)
  Sender: FDA-Public Use
  Company Number: PHHY2018DE061446

PATIENT
  Age: 73 Year
  Sex: Female
  Weight: 62.6 kg

DRUGS (7)
  1. AVASTIN [Suspect]
     Active Substance: BEVACIZUMAB
     Indication: OVARIAN CANCER
     Dosage: 15 MG/KG, UNK (930?945 MG)
     Route: 042
     Dates: start: 20131015, end: 20140211
  2. PACLITAXEL. [Suspect]
     Active Substance: PACLITAXEL
     Indication: OVARIAN CANCER
     Dosage: 175 MG/M2, UNK (290 MG)
     Route: 042
     Dates: start: 20131015, end: 20140107
  3. CARBOPLATIN. [Suspect]
     Active Substance: CARBOPLATIN
     Indication: OVARIAN CANCER
     Dosage: 530 MG, UNK (AUC5=472.1 ?530 MG)
     Route: 042
     Dates: start: 20131015, end: 20140107
  4. MIRTAZAPIN [Concomitant]
     Active Substance: MIRTAZAPINE
     Indication: DEPRESSION
     Dosage: 30 MG, UNK
     Route: 048
  5. RAMIPRIL. [Concomitant]
     Active Substance: RAMIPRIL
     Indication: HYPERTENSION
     Dosage: 10 MG, UNK
     Route: 048
  6. ZOLPIDEM [Concomitant]
     Active Substance: ZOLPIDEM\ZOLPIDEM TARTRATE
     Indication: DEPRESSION
     Dosage: 10 MG, UNK
     Route: 048
  7. REKAWAN [Concomitant]
     Active Substance: POTASSIUM CHLORIDE
     Indication: HYPOKALAEMIA
     Dosage: 1200 MG, UNK (DAILY DOSE: 1200 MG MILLGRAM(S) EVERY DAYS)
     Route: 048
     Dates: start: 20131212, end: 20140101

REACTIONS (11)
  - Joint swelling [Recovered/Resolved]
  - Pancytopenia [Recovered/Resolved]
  - Monoparesis [Not Recovered/Not Resolved]
  - Hypertension [Recovered/Resolved]
  - Peripheral paralysis [Unknown]
  - Pain in extremity [Not Recovered/Not Resolved]
  - Thoracic vertebral fracture [Not Recovered/Not Resolved]
  - Polyneuropathy [Not Recovered/Not Resolved]
  - Paraesthesia [Not Recovered/Not Resolved]
  - Fall [Unknown]
  - Hypoaesthesia [Unknown]

NARRATIVE: CASE EVENT DATE: 20131108
